FAERS Safety Report 7473994-8 (Version None)
Quarter: 2011Q2

REPORT INFORMATION
  Report Type: 
  Country: None (occurrence: None)
  Receive Date: 20110511
  Receipt Date: 20110509
  Transmission Date: 20111010
  Serious: Yes (Hospitalization, Other)
  Sender: FDA-Public Use
  Company Number: JP-PFIZER INC-2011043945

PATIENT
  Age: 78 Year
  Sex: Female

DRUGS (7)
  1. CELECOXIB [Suspect]
     Dosage: 200 MG/DAY
     Route: 048
     Dates: start: 20110218, end: 20110225
  2. FENTANYL [Concomitant]
     Dosage: UNK
     Dates: start: 20110218, end: 20110218
  3. MUCOSTA [Concomitant]
     Dosage: UNK
     Route: 048
     Dates: start: 20110218, end: 20110225
  4. PROPOFOL [Concomitant]
     Dosage: UNK
     Dates: start: 20110218, end: 20110218
  5. ULTIVA [Concomitant]
     Dosage: UNK
     Dates: start: 20110218, end: 20110218
  6. ATROPINE [Concomitant]
     Dosage: UNK
     Dates: start: 20110218, end: 20110218
  7. MUSCULAX [Concomitant]
     Dosage: UNK
     Dates: start: 20110218, end: 20110218

REACTIONS (2)
  - VOMITING [None]
  - CHOLECYSTITIS ACUTE [None]
